FAERS Safety Report 12511364 (Version 1)
Quarter: 2016Q2

REPORT INFORMATION
  Report Type: Spontaneous
  Country: US (occurrence: US)
  Receive Date: 20160629
  Receipt Date: 20160629
  Transmission Date: 20160815
  Serious: Yes (Hospitalization, Other)
  Sender: FDA-Public Use
  Company Number: US-ASTRAZENECA-2016SE68853

PATIENT
  Age: 735 Month
  Sex: Female
  Weight: 124.3 kg

DRUGS (10)
  1. BRILINTA [Suspect]
     Active Substance: TICAGRELOR
     Indication: ACUTE CORONARY SYNDROME
     Route: 048
     Dates: start: 20151114, end: 201602
  2. ATORVASTATIN [Concomitant]
     Active Substance: ATORVASTATIN
     Indication: BLOOD CHOLESTEROL ABNORMAL
     Dates: start: 201511
  3. STOOL SOFTENER [Concomitant]
     Active Substance: DOCUSATE CALCIUM
     Indication: LAXATIVE SUPPORTIVE CARE
  4. METOPROLOL TARTATE [Suspect]
     Active Substance: METOPROLOL TARTRATE
     Indication: HYPERTENSION
     Route: 048
     Dates: start: 201511
  5. NITRO [Concomitant]
     Active Substance: NITROGLYCERIN
     Indication: CHEST PAIN
     Dosage: 0.4 MG UNDER THE TONGUE 3 EVERY 5 MINUTES ONE EVERY 5 MINUTES
     Route: 060
  6. BRILINTA [Suspect]
     Active Substance: TICAGRELOR
     Indication: STENT PLACEMENT
     Route: 048
     Dates: start: 20151114, end: 201602
  7. ISOSORBIDE. [Concomitant]
     Active Substance: ISOSORBIDE
     Indication: CARDIAC DISORDER
     Dosage: 30 MG ONE HALF TAB DAILY FOR 30 DAYS
  8. LISINOPRIL. [Suspect]
     Active Substance: LISINOPRIL
     Indication: HYPERTENSION
     Route: 048
     Dates: start: 201511
  9. ASPIRIN. [Concomitant]
     Active Substance: ASPIRIN
     Route: 046
     Dates: start: 201511
  10. LEVOTHYROXINE. [Concomitant]
     Active Substance: LEVOTHYROXINE
     Indication: THYROID DISORDER
     Dates: start: 2006

REACTIONS (10)
  - Fall [Unknown]
  - Hernia [Unknown]
  - Sinus disorder [Unknown]
  - Contusion [Unknown]
  - Drug dose omission [Unknown]
  - Dizziness [Unknown]
  - Vertigo [Unknown]
  - Blood pressure increased [Unknown]
  - Joint dislocation [Unknown]
  - Intentional product misuse [Unknown]

NARRATIVE: CASE EVENT DATE: 201602
